FAERS Safety Report 4488065-2 (Version None)
Quarter: 2004Q4

REPORT INFORMATION
  Report Type: 
  Country: None (occurrence: None)
  Receive Date: 20041022
  Receipt Date: 20041018
  Transmission Date: 20050328
  Serious: Yes (Life-Threatening, Hospitalization, Other)
  Sender: FDA-Public Use
  Company Number: HQWYE876918OCT04

PATIENT
  Age: 13 Year
  Sex: Female

DRUGS (1)
  1. ADVIL [Suspect]
     Indication: PYREXIA
     Dosage: 2 TABS  DAILY, ORAL
     Route: 048
     Dates: start: 20040904, end: 20040906

REACTIONS (3)
  - DISEASE PROGRESSION [None]
  - PLEURISY [None]
  - PNEUMONIA PNEUMOCOCCAL [None]
